FAERS Safety Report 13031030 (Version 1)
Quarter: 2016Q4

REPORT INFORMATION
  Report Type: Other
  Country: GB (occurrence: GB)
  Receive Date: 20161215
  Receipt Date: 20161215
  Transmission Date: 20170207
  Serious: Yes (Life-Threatening, Hospitalization, Other)
  Sender: FDA-Public Use
  Company Number: GB-RARE DISEASE THERAPEUTICS, INC.-1060857

PATIENT
  Age: 7 Year
  Sex: Male
  Weight: 23.2 kg

DRUGS (13)
  1. CHLORPHENAMINE [Concomitant]
     Active Substance: CHLORPHENIRAMINE MALEATE
  2. LENOGRASTIM [Concomitant]
     Active Substance: LENOGRASTIM
  3. COTRIMOXAZOLE [Concomitant]
     Active Substance: SULFAMETHOXAZOLE\TRIMETHOPRIM
  4. PIPERACILLIN AND TAZOBACTAM [Concomitant]
     Active Substance: PIPERACILLIN SODIUM\TAZOBACTAM SODIUM
  5. CYCLOPHOSPHAMIDE. [Suspect]
     Active Substance: CYCLOPHOSPHAMIDE
     Route: 042
     Dates: start: 20140102, end: 20150514
  6. DAUNORUBICIN HYDROCHLORIDE. [Suspect]
     Active Substance: DAUNORUBICIN HYDROCHLORIDE
     Route: 042
     Dates: start: 20131121, end: 20131208
  7. DAPSONE. [Concomitant]
     Active Substance: DAPSONE
  8. PARACETAMOL [Concomitant]
     Active Substance: ACETAMINOPHEN
  9. CHLORAMPHENICOL [Concomitant]
     Active Substance: CHLORAMPHENICOL
  10. MIDAZOLAM [Concomitant]
     Active Substance: MIDAZOLAM\MIDAZOLAM HYDROCHLORIDE
  11. DOXORUBICIN HYDROCHLORIDE. [Suspect]
     Active Substance: DOXORUBICIN HYDROCHLORIDE
     Route: 042
     Dates: start: 20140417, end: 20140501
  12. METHOTREXATE. [Suspect]
     Active Substance: METHOTREXATE
     Dates: start: 201407
  13. PURIXAN [Suspect]
     Active Substance: MERCAPTOPURINE
     Indication: PRECURSOR B-LYMPHOBLASTIC LYMPHOMA
     Dates: start: 201407

REACTIONS (4)
  - Drug intolerance [Unknown]
  - Off label use [None]
  - Neutropenia [Not Recovered/Not Resolved]
  - Acute myeloid leukaemia [Not Recovered/Not Resolved]

NARRATIVE: CASE EVENT DATE: 201407
